FAERS Safety Report 10349538 (Version 1)
Quarter: 2014Q3

REPORT INFORMATION
  Report Type: Spontaneous
  Country: IT (occurrence: None)
  Receive Date: 20140728
  Receipt Date: 20140728
  Transmission Date: 20150326
  Serious: Yes (Hospitalization)
  Sender: FDA-Public Use
  Company Number: AUR-APL-2014-07896

PATIENT
  Age: 80 Year
  Sex: Female

DRUGS (10)
  1. RANITIDINE HYDROCHLORIDE (RANITIDINE HYDROCHLORIDIE) [Concomitant]
  2. ASPIRIN. [Concomitant]
     Active Substance: ASPIRIN
  3. FUROSEMIDE (FUROSEMIDE) [Concomitant]
     Active Substance: FUROSEMIDE
  4. RAMIPRIL. [Suspect]
     Active Substance: RAMIPRIL
     Indication: PRODUCT USED FOR UNKNOWN INDICATION
     Route: 048
     Dates: start: 20140101, end: 20140426
  5. CEFTRIAXONE SODIUM. [Suspect]
     Active Substance: CEFTRIAXONE SODIUM
     Indication: PRODUCT USED FOR UNKNOWN INDICATION
     Route: 030
     Dates: start: 20140425, end: 20140426
  6. ATORVASTATIN CALCIUM. [Suspect]
     Active Substance: ATORVASTATIN CALCIUM
     Indication: PRODUCT USED FOR UNKNOWN INDICATION
     Route: 048
     Dates: start: 20140110, end: 20140426
  7. BISOPROLOL FUMARATE (BISOPROLOL FUMARATE) [Concomitant]
  8. XANAX [Concomitant]
     Active Substance: ALPRAZOLAM
  9. LUVION [Concomitant]
     Active Substance: CANRENONE
  10. ESAPENT (OMEGA-3 TRIGLYCERIDES) [Concomitant]

REACTIONS (3)
  - Liver disorder [None]
  - Alanine aminotransferase increased [None]
  - Aspartate aminotransferase increased [None]

NARRATIVE: CASE EVENT DATE: 20140426
